FAERS Safety Report 19683177 (Version 1)
Quarter: 2021Q3

REPORT INFORMATION
  Report Type: Spontaneous
  Country: JP (occurrence: JP)
  Receive Date: 20210811
  Receipt Date: 20210811
  Transmission Date: 20211014
  Serious: Yes (Hospitalization, Other)
  Sender: FDA-Public Use
  Company Number: JP-LUPIN PHARMACEUTICALS INC.-2021-14255

PATIENT
  Age: 70 Year
  Sex: Female

DRUGS (6)
  1. METHYLPREDNISOLONE. [Interacting]
     Active Substance: METHYLPREDNISOLONE
     Dosage: 40 MILLIGRAM, QD
     Route: 065
  2. METHYLPREDNISOLONE. [Suspect]
     Active Substance: METHYLPREDNISOLONE
     Indication: RHEUMATOID ARTHRITIS
     Dosage: 3 MILLIGRAM, QD
     Route: 065
  3. METHYLPREDNISOLONE. [Interacting]
     Active Substance: METHYLPREDNISOLONE
     Dosage: 7 MILLIGRAM, QD (TAPERED DOSE)
     Route: 065
  4. METHYLPREDNISOLONE. [Interacting]
     Active Substance: METHYLPREDNISOLONE
     Dosage: 1 MILLIGRAM/KILOGRAM OF PREDNISOLONE
     Route: 065
  5. METHYLPREDNISOLONE. [Interacting]
     Active Substance: METHYLPREDNISOLONE
     Dosage: 1 GRAM (PULSE THERAPY FOR 3 DAYS)
     Route: 065
  6. TOFACITINIB [Interacting]
     Active Substance: TOFACITINIB
     Indication: RHEUMATOID ARTHRITIS
     Dosage: 10 MILLIGRAM, QD
     Route: 065

REACTIONS (5)
  - Varicella zoster virus infection [Recovering/Resolving]
  - Infection reactivation [Recovering/Resolving]
  - Drug ineffective [Unknown]
  - Viral myelitis [Recovering/Resolving]
  - Drug interaction [Unknown]
